FAERS Safety Report 21891463 (Version 1)
Quarter: 2023Q1

REPORT INFORMATION
  Report Type: Spontaneous
  Country: US (occurrence: None)
  Receive Date: 20230119
  Receipt Date: 20230119
  Transmission Date: 20230417
  Serious: Yes (Other)
  Sender: FDA-Public Use
  Company Number: None

PATIENT
  Sex: Male

DRUGS (2)
  1. PROCRIT [Suspect]
     Active Substance: ERYTHROPOIETIN
     Indication: Chronic kidney disease
     Dosage: 10000 UNIT/ML  INJECTION??INJECT 10,000 UNITS (1ML) UNDER THE SKIN (SUBCUTANEOUS INJECTION) ONCE A
     Dates: start: 20221207
  2. EPOGEN [Concomitant]
     Active Substance: ERYTHROPOIETIN

REACTIONS (2)
  - Cytomegalovirus infection [None]
  - Eye haemorrhage [None]
